FAERS Safety Report 8673331 (Version 2)
Quarter: 2013Q1

REPORT INFORMATION
  Report Type: Spontaneous
  Country: BR (occurrence: BR)
  Receive Date: 20120719
  Receipt Date: 20130219
  Transmission Date: 20140127
  Serious: Yes (Hospitalization, Other)
  Sender: FDA-Public Use
  Company Number: PHHY2012BR021003

PATIENT
  Age: 92 Year
  Sex: Female

DRUGS (4)
  1. ACLASTA [Suspect]
     Indication: OSTEOPOROSIS
     Dosage: 5 MG/100 ML, 1 INJECTION PER YEAR
     Route: 042
     Dates: start: 20120306
  2. OLCADIL [Suspect]
     Indication: SLEEP DISORDER
     Dosage: 1 MG, QD
     Route: 048
  3. OXYGEN [Concomitant]
  4. CARISOPRODOL [Concomitant]
     Indication: ANALGESIC THERAPY
     Dosage: 2 DF, QD
     Route: 048

REACTIONS (17)
  - Pneumonia [Unknown]
  - Headache [Unknown]
  - Cyanosis [Unknown]
  - Circulatory collapse [Unknown]
  - Dyspnoea [Recovered/Resolved]
  - Productive cough [Unknown]
  - Vital capacity decreased [Not Recovered/Not Resolved]
  - Infarction [Unknown]
  - Hypotension [Unknown]
  - Decreased interest [Not Recovered/Not Resolved]
  - Depressed mood [Not Recovered/Not Resolved]
  - Enzyme abnormality [Unknown]
  - Insomnia [Unknown]
  - Injection site erythema [Recovered/Resolved]
  - Malaise [Unknown]
  - Pain [Recovering/Resolving]
  - Influenza [Unknown]
